FAERS Safety Report 7929030-X (Version None)
Quarter: 2011Q4

REPORT INFORMATION
  Report Type: 
  Country: None (occurrence: None)
  Receive Date: 20111118
  Receipt Date: 20111107
  Transmission Date: 20120403
  Serious: Yes (Hospitalization)
  Sender: FDA-Public Use
  Company Number: US-ROCHE-1012271

PATIENT
  Sex: Male

DRUGS (3)
  1. HERCEPTIN [Suspect]
  2. HERCEPTIN [Suspect]
     Indication: BREAST CANCER METASTATIC
     Route: 042
     Dates: start: 20080320
  3. HERCEPTIN [Suspect]

REACTIONS (3)
  - FATIGUE [None]
  - BLOOD CREATININE INCREASED [None]
  - BLOOD BILIRUBIN INCREASED [None]
